FAERS Safety Report 19378849 (Version 3)
Quarter: 2022Q2

REPORT INFORMATION
  Report Type: Report from Study
  Country: JP (occurrence: JP)
  Receive Date: 20210606
  Receipt Date: 20220502
  Transmission Date: 20220720
  Serious: Yes (Other)
  Sender: FDA-Public Use
  Company Number: JP-CELLTRION INC.-2020JP024463

PATIENT

DRUGS (9)
  1. INFLIXIMAB [Suspect]
     Active Substance: INFLIXIMAB
     Dosage: 315 MILLIGRAM
     Route: 041
     Dates: start: 20181128, end: 20181128
  2. INFLIXIMAB [Suspect]
     Active Substance: INFLIXIMAB
     Dosage: 300 MILLIGRAM
     Route: 041
     Dates: start: 20190123, end: 20190123
  3. INFLIXIMAB [Suspect]
     Active Substance: INFLIXIMAB
     Dosage: 300 MILLIGRAM
     Route: 041
     Dates: start: 20190320, end: 20190320
  4. INFLIXIMAB [Suspect]
     Active Substance: INFLIXIMAB
     Dosage: 300 MILLIGRAM
     Route: 041
     Dates: start: 20190514, end: 20190514
  5. INFLIXIMAB [Suspect]
     Active Substance: INFLIXIMAB
     Dosage: 315 MILLIGRAM
     Route: 041
     Dates: start: 20191113, end: 20191113
  6. INFLIXIMAB [Suspect]
     Active Substance: INFLIXIMAB
     Dosage: 300 MILLIGRAM
     Route: 041
     Dates: start: 20201223, end: 20201223
  7. INFLIXIMAB [Suspect]
     Active Substance: INFLIXIMAB
     Dosage: 320 MILLIGRAM
     Route: 041
     Dates: start: 20211222, end: 20211222
  8. AZATHIOPRINE [Concomitant]
     Active Substance: AZATHIOPRINE
     Dosage: 50 MG PER DAY
     Route: 048
  9. MESALAMINE [Concomitant]
     Active Substance: MESALAMINE
     Dosage: 2400 MILLIGRAM, DAILY
     Route: 048
     Dates: start: 20180613

REACTIONS (10)
  - Nephrolithiasis [Not Recovered/Not Resolved]
  - Asthma [Not Recovered/Not Resolved]
  - Pollakiuria [Not Recovered/Not Resolved]
  - Heat illness [Recovered/Resolved]
  - Dyspepsia [Recovered/Resolved]
  - Nasopharyngitis [Recovered/Resolved]
  - Gastrooesophageal reflux disease [Not Recovered/Not Resolved]
  - Dermatophytosis of nail [Not Recovered/Not Resolved]
  - Off label use [Unknown]
  - Underdose [Unknown]

NARRATIVE: CASE EVENT DATE: 20190710
